FAERS Safety Report 9308333 (Version 1)
Quarter: 2013Q2

REPORT INFORMATION
  Report Type: Spontaneous
  Country: DE (occurrence: DE)
  Receive Date: 20130524
  Receipt Date: 20130524
  Transmission Date: 20140414
  Serious: Yes (Other)
  Sender: FDA-Public Use
  Company Number: DE-TEVA-404702GER

PATIENT
  Sex: Female
  Weight: 65 kg

DRUGS (5)
  1. TOPIRAMATE [Suspect]
     Indication: EPILEPSY
     Dosage: 100 MILLIGRAM DAILY;
     Route: 048
     Dates: start: 20121015, end: 20130305
  2. LAMOTRIGIN [Suspect]
     Indication: EPILEPSY
     Dosage: 400 MILLIGRAM DAILY;
     Route: 048
     Dates: start: 20121015, end: 20130305
  3. FOLSAEURE RATIOPHARM [Concomitant]
     Indication: PROPHYLAXIS OF NEURAL TUBE DEFECT
     Dosage: 5 MILLIGRAM DAILY;
     Route: 048
     Dates: start: 20121120, end: 20130305
  4. CEFUROXIM [Concomitant]
     Indication: BACTERIAL INFECTION
     Dosage: 1500 [MG ]
     Route: 042
     Dates: start: 20130304, end: 20130305
  5. BUSCOPAN AMPULLEN [Concomitant]
     Indication: PAIN
     Dosage: 60 MILLIGRAM DAILY; 60 [MG/D (3X20) ]
     Route: 042
     Dates: start: 20130304, end: 20130305

REACTIONS (1)
  - Abortion late [Recovered/Resolved]
